FAERS Safety Report 7970144-6 (Version None)
Quarter: 2011Q4

REPORT INFORMATION
  Report Type: 
  Country: None (occurrence: None)
  Receive Date: 20111212
  Receipt Date: 20111202
  Transmission Date: 20120403
  Serious: Yes (Other)
  Sender: FDA-Public Use
  Company Number: US-US-EMD SERONO, INC.-7099954

PATIENT
  Sex: Male

DRUGS (6)
  1. REBIF [Suspect]
     Indication: MULTIPLE SCLEROSIS
     Route: 058
     Dates: start: 20110720, end: 20111024
  2. TEGRETOL [Suspect]
     Indication: MUSCLE SPASMS
  3. CLONAZEPAM [Concomitant]
     Indication: DYSKINESIA
  4. AMBIEN [Concomitant]
     Indication: SLEEP DISORDER
  5. ZANAFLEX [Suspect]
     Indication: MUSCLE SPASMS
  6. BACLOFEN [Concomitant]
     Indication: MUSCLE SPASMS

REACTIONS (6)
  - LOSS OF CONSCIOUSNESS [None]
  - RECTAL SPASM [None]
  - DIZZINESS [None]
  - TREMOR [None]
  - MUSCLE SPASMS [None]
  - FATIGUE [None]
